FAERS Safety Report 5652173-0 (Version None)
Quarter: 2008Q1

REPORT INFORMATION
  Report Type: 
  Country: None (occurrence: None)
  Receive Date: 20080304
  Receipt Date: 20080219
  Transmission Date: 20080703
  Serious: Yes (Hospitalization)
  Sender: FDA-Public Use
  Company Number: 100#08#2008-00908

PATIENT
  Age: 47 Year
  Sex: Female

DRUGS (2)
  1. ONDANSETRON [Suspect]
     Indication: NAUSEA
     Dosage: 4 MG INTRAVENOUS (NOT OTHERWISE SPECIFIED), ONCE
     Route: 042
  2. CYCLOPHOSPHAMIDE [Concomitant]

REACTIONS (5)
  - BLOOD PRESSURE INCREASED [None]
  - EJECTION FRACTION DECREASED [None]
  - MYOCARDIAL ISCHAEMIA [None]
  - PERICARDIAL EFFUSION [None]
  - VENTRICULAR HYPOKINESIA [None]
